FAERS Safety Report 7319842-8 (Version None)
Quarter: 2011Q1

REPORT INFORMATION
  Report Type: 
  Country: None (occurrence: None)
  Receive Date: 20110228
  Receipt Date: 20110106
  Transmission Date: 20110831
  Serious: No
  Sender: FDA-Public Use
  Company Number: A0887875A

PATIENT
  Age: 43 Year
  Sex: Female

DRUGS (2)
  1. UNKNOWN [Concomitant]
  2. LAMICTAL [Suspect]
     Indication: HEADACHE
     Dosage: 200MG TWICE PER DAY
     Route: 048

REACTIONS (2)
  - RASH [None]
  - PRODUCT QUALITY ISSUE [None]
